FAERS Safety Report 9130835 (Version 2)
Quarter: 2013Q2

REPORT INFORMATION
  Report Type: Spontaneous
  Country: US (occurrence: US)
  Receive Date: 20130301
  Receipt Date: 20130429
  Transmission Date: 20140414
  Serious: Yes (Other)
  Sender: FDA-Public Use
  Company Number: US-PFIZER INC-2013068238

PATIENT
  Age: 76 Year
  Sex: Female
  Weight: 81.63 kg

DRUGS (5)
  1. DETROL LA [Suspect]
     Indication: URINARY INCONTINENCE
     Dosage: 4 MG, 1X/DAY
  2. LISINOPRIL [Concomitant]
     Indication: HYPERTENSION
     Dosage: 20 MG, 1X/DAY
  3. AMLODIPINE [Concomitant]
     Indication: HYPERTENSION
     Dosage: 2.5 MG, 1X/DAY
  4. ALPRAZOLAM [Concomitant]
     Dosage: 5 MG, 1X/DAY
  5. LEVOTHYROXINE [Concomitant]
     Indication: THYROID DISORDER
     Dosage: 1 MG, 1X/DAY

REACTIONS (3)
  - Breast cancer female [Unknown]
  - Infection [Unknown]
  - Pyrexia [Unknown]
